FAERS Safety Report 9341036 (Version 2)
Quarter: 2013Q4

REPORT INFORMATION
  Report Type: Spontaneous
  Country: US (occurrence: US)
  Receive Date: 20130610
  Receipt Date: 20131111
  Transmission Date: 20140711
  Serious: Yes (Life-Threatening, Hospitalization, Other)
  Sender: FDA-Public Use
  Company Number: US-ASTRAZENECA-2013SE40217

PATIENT
  Age: 41 Year
  Sex: Female
  Weight: 63.5 kg

DRUGS (14)
  1. SEROQUEL [Suspect]
     Indication: HALLUCINATION
     Route: 048
     Dates: start: 200905, end: 20091202
  2. SEROQUEL [Suspect]
     Indication: SCHIZOAFFECTIVE DISORDER BIPOLAR TYPE
     Route: 048
     Dates: start: 200905, end: 20091202
  3. SEROQUEL [Suspect]
     Indication: HALLUCINATION
     Dosage: 300 MG AT NIGHT ON AND OFF
     Route: 048
     Dates: start: 201210, end: 20131030
  4. SEROQUEL [Suspect]
     Indication: SCHIZOAFFECTIVE DISORDER BIPOLAR TYPE
     Dosage: 300 MG AT NIGHT ON AND OFF
     Route: 048
     Dates: start: 201210, end: 20131030
  5. SEROQUEL [Suspect]
     Indication: HALLUCINATION
     Route: 048
     Dates: start: 201210
  6. SEROQUEL [Suspect]
     Indication: SCHIZOAFFECTIVE DISORDER BIPOLAR TYPE
     Route: 048
     Dates: start: 201210
  7. LAMICTAL [Concomitant]
     Indication: MOOD ALTERED
     Route: 048
     Dates: start: 2006
  8. LAMICTAL [Concomitant]
     Indication: BIPOLAR DISORDER
     Route: 048
     Dates: start: 2006
  9. KLONOPIN [Concomitant]
     Indication: ANXIETY
     Route: 048
     Dates: start: 2006
  10. KLONOPIN [Concomitant]
     Indication: PANIC DISORDER
     Route: 048
     Dates: start: 2006
  11. EMERGENCY PILLS [Concomitant]
  12. THORAZINE [Concomitant]
     Dates: start: 20091202
  13. NUVIGIL [Concomitant]
     Indication: ATTENTION DEFICIT/HYPERACTIVITY DISORDER
     Dates: start: 2010
  14. VYVANSEE [Concomitant]
     Indication: ATTENTION DEFICIT/HYPERACTIVITY DISORDER
     Route: 048
     Dates: start: 201106

REACTIONS (30)
  - Suicide attempt [Unknown]
  - Suicidal ideation [Unknown]
  - Bipolar I disorder [Unknown]
  - Aggression [Unknown]
  - Attention deficit/hyperactivity disorder [Unknown]
  - Convulsion [Unknown]
  - Drug tolerance [Unknown]
  - Insomnia [Unknown]
  - Hallucination [Unknown]
  - Adverse event [Unknown]
  - Activities of daily living impaired [Unknown]
  - Depression [Unknown]
  - Hallucination, auditory [Unknown]
  - Polymedication [Unknown]
  - Feeling abnormal [Unknown]
  - Incoherent [Unknown]
  - Dissociation [Unknown]
  - Abnormal behaviour [Unknown]
  - Anxiety [Unknown]
  - Memory impairment [Unknown]
  - Obsessive-compulsive personality disorder [Unknown]
  - Narcissistic personality disorder [Unknown]
  - Borderline personality disorder [Unknown]
  - Post-traumatic stress disorder [Unknown]
  - Panic reaction [Unknown]
  - Hypersomnia [Unknown]
  - Sedation [Unknown]
  - Intentional drug misuse [Unknown]
  - Intentional drug misuse [Unknown]
  - Drug ineffective [Unknown]
